FAERS Safety Report 24840934 (Version 1)
Quarter: 2025Q1

REPORT INFORMATION
  Report Type: Spontaneous
  Country: US (occurrence: US)
  Receive Date: 20250114
  Receipt Date: 20250114
  Transmission Date: 20250408
  Serious: Yes (Other)
  Sender: GLAXOSMITHKLINE
  Company Number: US-GLAXOSMITHKLINE INC-US2025001412

PATIENT

DRUGS (1)
  1. TRELEGY ELLIPTA [Suspect]
     Active Substance: FLUTICASONE FUROATE\UMECLIDINIUM BROMIDE\VILANTEROL TRIFENATATE
     Indication: Chronic obstructive pulmonary disease
     Dosage: UNK UNK, QD 200/62.5/25 MCGUSE 1 INHALATION
     Route: 048
     Dates: start: 202101

REACTIONS (6)
  - Gallbladder polyp [Unknown]
  - Cardiac disorder [Unknown]
  - Liver disorder [Unknown]
  - Gastrointestinal disorder [Unknown]
  - Gallbladder disorder [Unknown]
  - Product dose omission issue [Unknown]

NARRATIVE: CASE EVENT DATE: 20240101
